FAERS Safety Report 7290773-5 (Version None)
Quarter: 2011Q1

REPORT INFORMATION
  Report Type: 
  Country: None (occurrence: None)
  Receive Date: 20110214
  Receipt Date: 20110203
  Transmission Date: 20110831
  Serious: Yes (Hospitalization)
  Sender: FDA-Public Use
  Company Number: US-ROCHE-758460

PATIENT
  Age: 42 Year
  Sex: Male

DRUGS (2)
  1. COPEGUS [Suspect]
     Indication: HEPATITIS C
     Dosage: TAKEN DAILY
     Route: 048
  2. PEGASYS [Suspect]
     Indication: HEPATITIS C
     Dosage: THERAPY START DATE REPORTED AS ^OCT 2011^
     Route: 058

REACTIONS (1)
  - PULMONARY INFARCTION [None]
